FAERS Safety Report 11413526 (Version 1)
Quarter: 2015Q3

REPORT INFORMATION
  Report Type: Spontaneous
  Country: US (occurrence: US)
  Receive Date: 20150821
  Receipt Date: 20150821
  Transmission Date: 20151125
  Serious: No
  Sender: FDA-Public Use
  Company Number: US-ELI_LILLY_AND_COMPANY-US201104006546

PATIENT
  Age: 49 Year
  Sex: Male

DRUGS (7)
  1. HUMULIN R [Suspect]
     Active Substance: INSULIN HUMAN
     Indication: DIABETES MELLITUS
     Dosage: UNK
     Dates: start: 2007
  2. LASIX [Concomitant]
     Active Substance: FUROSEMIDE
     Dosage: UNK
  3. TYLENOL WITH CODEINE [Concomitant]
     Active Substance: ACETAMINOPHEN\CODEINE PHOSPHATE
     Dosage: UNK
  4. ZANAFLEX [Concomitant]
     Active Substance: TIZANIDINE HYDROCHLORIDE
     Dosage: UNK
  5. CORTICOSTEROIDS [Concomitant]
     Active Substance: CORTICOSTEROID NOS
     Indication: LOWER LIMB FRACTURE
  6. HUMULIN R [Suspect]
     Active Substance: INSULIN HUMAN
     Dosage: UNK
     Dates: start: 2007
  7. LIDOCAINE. [Concomitant]
     Active Substance: LIDOCAINE
     Dosage: UNK

REACTIONS (14)
  - Hypoglycaemia [Unknown]
  - Blood glucose increased [Unknown]
  - Increased appetite [Unknown]
  - Impaired healing [Unknown]
  - Glycosylated haemoglobin decreased [Unknown]
  - Incorrect dose administered [Unknown]
  - Overweight [Unknown]
  - Dizziness [Unknown]
  - Wound [Unknown]
  - Intervertebral disc protrusion [Not Recovered/Not Resolved]
  - Lower limb fracture [Not Recovered/Not Resolved]
  - Tremor [Unknown]
  - Hyperhidrosis [Unknown]
  - Osteoarthritis [Not Recovered/Not Resolved]
